FAERS Safety Report 16003311 (Version 1)
Quarter: 2019Q1

REPORT INFORMATION
  Report Type: Spontaneous
  Country: IT (occurrence: IT)
  Receive Date: 20190226
  Receipt Date: 20190226
  Transmission Date: 20190418
  Serious: Yes (Hospitalization)
  Sender: FDA-Public Use
  Company Number: IT-TEVA-2019-IT-1014998

PATIENT
  Age: 86 Year
  Sex: Male

DRUGS (10)
  1. MINITRAN [Concomitant]
     Active Substance: NITROGLYCERIN
  2. FOSTER [Concomitant]
     Active Substance: BECLOMETHASONE\FORMOTEROL
  3. BRETARIS GENUAIR [Concomitant]
     Active Substance: ACLIDINIUM BROMIDE
  4. DIAMICRON [Concomitant]
     Active Substance: GLICLAZIDE
  5. MICARDIS [Concomitant]
     Active Substance: TELMISARTAN
  6. XARELTO [Suspect]
     Active Substance: RIVAROXABAN
     Indication: MYOCARDIAL ISCHAEMIA
     Dosage: 15 MILLIGRAM DAILY;
     Route: 048
     Dates: start: 20170101, end: 20190203
  7. LASIX [Concomitant]
     Active Substance: FUROSEMIDE
  8. CLOPIDOGREL [Suspect]
     Active Substance: CLOPIDOGREL BISULFATE
     Indication: MYOCARDIAL ISCHAEMIA
     Dosage: 75 MILLIGRAM DAILY;
     Route: 048
     Dates: start: 20170101, end: 20190203
  9. OMEPRAZOLE. [Concomitant]
     Active Substance: OMEPRAZOLE
  10. CONGESCOR [Concomitant]
     Active Substance: BISOPROLOL

REACTIONS (1)
  - Haemoptysis [Unknown]

NARRATIVE: CASE EVENT DATE: 20190203
